FAERS Safety Report 20734541 (Version 1)
Quarter: 2022Q2

REPORT INFORMATION
  Report Type: Spontaneous
  Country: US (occurrence: None)
  Receive Date: 20220420
  Receipt Date: 20220420
  Transmission Date: 20220720
  Serious: Yes (Life-Threatening, Disabling)
  Sender: FDA-Public Use
  Company Number: None

PATIENT
  Age: 63 Year
  Sex: Female
  Weight: 74.25 kg

DRUGS (6)
  1. PROPRANOLOL HYDROCHLORIDE [Suspect]
     Active Substance: PROPRANOLOL HYDROCHLORIDE
     Indication: Palpitations
     Dosage: FREQUENCY : 4 TIMES A DAY;?
     Route: 048
     Dates: start: 20220331
  2. ZOLOFT [Concomitant]
     Active Substance: SERTRALINE HYDROCHLORIDE
  3. Multivitamin Centrum 50 plus [Concomitant]
  4. OCUVITE [Concomitant]
     Active Substance: VITAMINS
  5. HERBALS\TURMERIC [Concomitant]
     Active Substance: HERBALS\TURMERIC
  6. Black Elderberry Extract [Concomitant]

REACTIONS (7)
  - Withdrawal syndrome [None]
  - Dyspnoea [None]
  - Paraesthesia [None]
  - Dry mouth [None]
  - Insomnia [None]
  - Constipation [None]
  - Product substitution issue [None]

NARRATIVE: CASE EVENT DATE: 20220331
